FAERS Safety Report 10878498 (Version 1)
Quarter: 2015Q1

REPORT INFORMATION
  Report Type: Spontaneous
  Country: US (occurrence: None)
  Receive Date: 20150224
  Receipt Date: 20150224
  Transmission Date: 20150721
  Serious: No
  Sender: FDA-Public Use
  Company Number: None

PATIENT
  Age: 57 Year
  Sex: Female
  Weight: 81.65 kg

DRUGS (1)
  1. LEVOFLOXACIN 750 MG [Suspect]
     Active Substance: LEVOFLOXACIN
     Indication: SINUSITIS
     Dosage: TAKEN BY MOUTH
     Dates: start: 20150217, end: 20150218

REACTIONS (4)
  - Musculoskeletal pain [None]
  - Tendon pain [None]
  - Joint crepitation [None]
  - Pain in extremity [None]

NARRATIVE: CASE EVENT DATE: 20150218
